FAERS Safety Report 6736695-7 (Version None)
Quarter: 2010Q2

REPORT INFORMATION
  Report Type: 
  Country: None (occurrence: None)
  Receive Date: 20100521
  Receipt Date: 20100511
  Transmission Date: 20101027
  Serious: Yes (Hospitalization)
  Sender: FDA-Public Use
  Company Number: PHHY2009FR17179

PATIENT
  Sex: Male

DRUGS (2)
  1. ERL 080A ERL+TAB [Suspect]
     Indication: RENAL TRANSPLANT
     Dosage: 1440 MG, QD
     Dates: start: 20001127
  2. NEORAL [Suspect]
     Indication: RENAL TRANSPLANT
     Dosage: 275 MG, UNK
     Dates: start: 20071127

REACTIONS (4)
  - CATHETERISATION CARDIAC [None]
  - ECHOCARDIOGRAM ABNORMAL [None]
  - SINUS RHYTHM [None]
  - SUPRAVENTRICULAR TACHYCARDIA [None]
